FAERS Safety Report 10306588 (Version 2)
Quarter: 2014Q3

REPORT INFORMATION
  Report Type: Spontaneous
  Country: GB (occurrence: None)
  Receive Date: 20140711
  Receipt Date: 20140828
  Transmission Date: 20150326
  Serious: Yes (Death, Hospitalization)
  Sender: FDA-Public Use
  Company Number: SP08002

PATIENT
  Age: 71 Year
  Sex: Male

DRUGS (6)
  1. COLAZAL [Suspect]
     Active Substance: BALSALAZIDE DISODIUM
     Indication: COLITIS ULCERATIVE
     Dosage: 2250MG (750MG, 3 IN 1 D) ORAL
     Route: 048
     Dates: start: 19990101, end: 20140605
  2. CODEINE [Concomitant]
     Active Substance: CODEINE
  3. CALCICHEW D3 [Concomitant]
     Active Substance: CALCIUM\CHOLECALCIFEROL
  4. PREDNISOLONE. [Concomitant]
     Active Substance: PREDNISOLONE
  5. HYPROMELLOSE [Concomitant]
     Active Substance: HYPROMELLOSES
  6. ALENDRONIC ACID [Concomitant]
     Active Substance: ALENDRONIC ACID

REACTIONS (3)
  - Eosinophilic myocarditis [None]
  - Left ventricular dysfunction [None]
  - Myocarditis [None]

NARRATIVE: CASE EVENT DATE: 2014
